FAERS Safety Report 4762629-0 (Version None)
Quarter: 2005Q3

REPORT INFORMATION
  Report Type: 
  Country: None (occurrence: None)
  Receive Date: 20050907
  Receipt Date: 20050831
  Transmission Date: 20060218
  Serious: Yes (Death, Hospitalization)
  Sender: FDA-Public Use
  Company Number: 414785

PATIENT
  Sex: Male

DRUGS (9)
  1. CARVEDILOL [Suspect]
     Indication: DRUG USE FOR UNKNOWN INDICATION
     Dosage: 12.5MG TWICE PER DAY
     Route: 065
  2. LANOXIN [Concomitant]
  3. CAPTOPRIL [Concomitant]
  4. AMLODIPINE BESYLATE [Concomitant]
  5. PRAVASTATIN SODIUM [Concomitant]
  6. CARTIA XT [Concomitant]
  7. AMIODARONE [Concomitant]
  8. NITROGLYCERIN [Concomitant]
  9. FUROSEMIDE [Concomitant]

REACTIONS (6)
  - CARDIAC FAILURE CONGESTIVE [None]
  - CARDIOMEGALY [None]
  - DRUG ADMINISTRATION ERROR [None]
  - OEDEMA PERIPHERAL [None]
  - URETHRAL PAIN [None]
  - URINE OUTPUT DECREASED [None]
